FAERS Safety Report 23309232 (Version 1)
Quarter: 2023Q4

REPORT INFORMATION
  Report Type: Report from Study
  Country: GB (occurrence: GB)
  Receive Date: 20231218
  Receipt Date: 20231218
  Transmission Date: 20240110
  Serious: Yes (Hospitalization)
  Sender: FDA-Public Use
  Company Number: GB-SAMSUNG BIOEPIS-SB-2023-33300

PATIENT
  Sex: Female

DRUGS (1)
  1. IMRALDI [Suspect]
     Active Substance: ADALIMUMAB
     Indication: Spinal osteoarthritis
     Route: 058
     Dates: start: 20230922

REACTIONS (3)
  - Gastroenteritis viral [Not Recovered/Not Resolved]
  - Ankylosing spondylitis [Unknown]
  - Product use in unapproved indication [Unknown]
